FAERS Safety Report 5921940-8 (Version None)
Quarter: 2008Q4

REPORT INFORMATION
  Report Type: 
  Country: None (occurrence: None)
  Receive Date: 20081017
  Receipt Date: 20081008
  Transmission Date: 20090506
  Serious: Yes (Death, Life-Threatening, Hospitalization, Other)
  Sender: FDA-Public Use
  Company Number: RU-JNJFOC-20081002131

PATIENT
  Age: 24 Year
  Sex: Female

DRUGS (3)
  1. REMICADE [Suspect]
     Dosage: 2 INFUSIONS OF INFLIXIMAB RECEIVED, 1ST DATE UNKNOWN AND 2ND ON 06-OCT-2008
     Route: 042
  2. REMICADE [Suspect]
     Dosage: RECEIVED 2 INFUSIONS, 1ST DATE UNKNOWN AND 2ND ON 06-OCT-2008.
     Route: 042
  3. REMICADE [Suspect]
     Indication: CROHN'S DISEASE
     Dosage: RECEIVED 4 COURSES OF INFLIXIMAB IN 2005
     Route: 042

REACTIONS (4)
  - CROHN'S DISEASE [None]
  - HEPATITIS TOXIC [None]
  - NEUROLOGICAL SYMPTOM [None]
  - PURPURA [None]
